FAERS Safety Report 4641762-8 (Version None)
Quarter: 2005Q2

REPORT INFORMATION
  Report Type: 
  Country: None (occurrence: None)
  Receive Date: 20050420
  Receipt Date: 20050404
  Transmission Date: 20051028
  Serious: Yes (Death)
  Sender: FDA-Public Use
  Company Number: 430005L05USA

PATIENT
  Age: 68 Year

DRUGS (8)
  1. MITOXANTRONE [Suspect]
     Indication: LYMPHOMA
     Dosage: 10 MG/M2, 1 IN 1 CYCLE, INTRAVENOUS/8 CYCLE
  2. FLUDARABINE PHOSPHATE [Suspect]
     Indication: LYMPHOMA
     Dosage: 75 MG/M2, 1 IN 1 CYCLE/INTRAVENOUS/8 CYCLE
     Route: 042
  3. DEXAMETHASONE [Suspect]
     Indication: LYMPHOMA
     Dosage: 100 MG, 1 IN 1 CYCLE/8 CYCLE
  4. RITUXIMAB (RITUXIMAB) [Suspect]
     Indication: LYMPHOMA
     Dosage: SEE IMAGE, INTRAVENOUS
     Route: 042
  5. CYCLOPHOSPHAMIDE [Suspect]
     Indication: LYMPHOMA
  6. DOXORUBICIN (DOXORUBICIN) [Suspect]
     Indication: LYMPHOMA
  7. VINCRISTINE [Suspect]
     Indication: LYMPHOMA
  8. PREDNISONE [Suspect]

REACTIONS (2)
  - ACUTE MYELOMONOCYTIC LEUKAEMIA [None]
  - SPLENECTOMY [None]
